FAERS Safety Report 8430317-5 (Version None)
Quarter: 2012Q2

REPORT INFORMATION
  Report Type: 
  Country: None (occurrence: None)
  Receive Date: 20120612
  Receipt Date: 20120531
  Transmission Date: 20120825
  Serious: Yes (Life-Threatening, Hospitalization)
  Sender: FDA-Public Use
  Company Number: FR-BRISTOL-MYERS SQUIBB COMPANY-16666000

PATIENT
  Age: 79 Year
  Sex: Female

DRUGS (8)
  1. JANUVIA [Concomitant]
     Dosage: FORMULATION-100 MG
     Dates: end: 20120423
  2. PAROXETINE HYDROCHLORIDE [Concomitant]
  3. NOVORAPID [Concomitant]
  4. PERINDOPRIL ERBUMINE [Concomitant]
     Dates: end: 20120423
  5. LASIX [Concomitant]
     Dates: end: 20120423
  6. LANTUS [Concomitant]
  7. ACETAMINOPHEN [Concomitant]
  8. GLUCOPHAGE [Suspect]
     Dosage: ON UNK DATE DOSE INCREASED TO 1G,2DF/DY,ON 20APR12 INCREASED TO 1G,3DF/DY
     Route: 048
     Dates: end: 20120423

REACTIONS (4)
  - RENAL FAILURE ACUTE [None]
  - SEPSIS [None]
  - LACTIC ACIDOSIS [None]
  - CEREBROVASCULAR ACCIDENT [None]
